FAERS Safety Report 17956542 (Version 5)
Quarter: 2020Q4

REPORT INFORMATION
  Report Type: Report from Study
  Country: GB (occurrence: GB)
  Receive Date: 20200629
  Receipt Date: 20201218
  Transmission Date: 20210113
  Serious: Yes (Hospitalization, Other)
  Sender: FDA-Public Use
  Company Number: GB-TEVA-2019-GB-1158371

PATIENT
  Age: 28 Year
  Sex: Female

DRUGS (7)
  1. PREGNACARE [Concomitant]
     Active Substance: MINERALS\VITAMINS
     Indication: ILLNESS
     Dates: start: 201910, end: 202008
  2. ONDANSETRON [Concomitant]
     Active Substance: ONDANSETRON
     Indication: ILLNESS
     Dosage: 24 MILLIGRAM DAILY;
     Dates: start: 201912, end: 20200811
  3. COPAXONE [Suspect]
     Active Substance: GLATIRAMER ACETATE
     Indication: MULTIPLE SCLEROSIS
     Route: 058
     Dates: start: 20180621, end: 20200615
  4. OMEPRAZOLE. [Concomitant]
     Active Substance: OMEPRAZOLE
     Indication: GASTROOESOPHAGEAL REFLUX DISEASE
     Dosage: 20 MILLIGRAM DAILY;
     Dates: start: 201912, end: 202006
  5. BISOPROLOL [Concomitant]
     Active Substance: BISOPROLOL
     Indication: CONSTIPATION
     Dosage: 5 MILLIGRAM DAILY;
     Dates: start: 202006, end: 202008
  6. STEMETIL [Concomitant]
     Active Substance: PROCHLORPERAZINE
     Indication: ILLNESS
     Dates: start: 201912, end: 202005
  7. DOCUSATE SODIUM. [Concomitant]
     Active Substance: DOCUSATE SODIUM
     Indication: CONSTIPATION
     Dosage: 100 MILLIGRAM DAILY;
     Dates: start: 201912, end: 202006

REACTIONS (18)
  - Immediate post-injection reaction [Recovered/Resolved]
  - Caesarean section [Unknown]
  - Palpitations [Unknown]
  - Maternal exposure during pregnancy [Unknown]
  - Illness [Unknown]
  - Nausea [Unknown]
  - Product dose omission issue [Unknown]
  - Asthenia [Unknown]
  - Chest pain [Unknown]
  - Dehydration [Unknown]
  - Infection [Unknown]
  - Hyperemesis gravidarum [Unknown]
  - Dyspnoea [Unknown]
  - Pyrexia [Unknown]
  - Vomiting [Unknown]
  - Feeding disorder [Unknown]
  - Erythema [Unknown]
  - Normal newborn [Unknown]

NARRATIVE: CASE EVENT DATE: 20191024
